FAERS Safety Report 20036006 (Version 2)
Quarter: 2021Q4

REPORT INFORMATION
  Report Type: Spontaneous
  Country: JP (occurrence: JP)
  Receive Date: 20211105
  Receipt Date: 20211117
  Transmission Date: 20220304
  Serious: Yes (Other)
  Sender: FDA-Public Use
  Company Number: JP-TAKEDA-2021TJP113790

PATIENT
  Age: 21 Year
  Sex: Female

DRUGS (1)
  1. LEUPLIN [Suspect]
     Active Substance: LEUPROLIDE ACETATE
     Indication: Heavy menstrual bleeding
     Dosage: 1.88 MILLIGRAM, Q4WEEKS
     Route: 065

REACTIONS (2)
  - Genital haemorrhage [Recovered/Resolved]
  - Condition aggravated [Recovered/Resolved]
